FAERS Safety Report 9399553 (Version 1)
Quarter: 2013Q3

REPORT INFORMATION
  Report Type: Spontaneous
  Country: US (occurrence: None)
  Receive Date: 20130710
  Receipt Date: 20130710
  Transmission Date: 20140515
  Serious: Yes (Hospitalization, Other)
  Sender: FDA-Public Use
  Company Number: AUR-APL-2013-05670

PATIENT
  Sex: Female

DRUGS (2)
  1. ONDANSETRON (ONDANSETRON) [Suspect]
     Indication: NAUSEA
     Route: 048
     Dates: start: 20130506, end: 20130507
  2. ZOLOFT (SERTRALINE HYDROCHLORIDE) [Suspect]
     Indication: PRODUCT USED FOR UNKNOWN INDICATION

REACTIONS (8)
  - Anxiety [None]
  - Depression [None]
  - Malaise [None]
  - Insomnia [None]
  - Aphagia [None]
  - Drug hypersensitivity [None]
  - Feeling abnormal [None]
  - Vomiting [None]
